FAERS Safety Report 10007020 (Version 1)
Quarter: 2014Q1

REPORT INFORMATION
  Report Type: Spontaneous
  Country: DE (occurrence: None)
  Receive Date: 20140311
  Receipt Date: 20140311
  Transmission Date: 20141002
  Serious: Yes (Hospitalization, Other)
  Sender: FDA-Public Use
  Company Number: 1403-0442

PATIENT
  Age: 88 Year
  Sex: Female

DRUGS (1)
  1. EYELEA [Suspect]
     Dosage: INTRAVITREAL
     Dates: start: 20130306, end: 20131031

REACTIONS (5)
  - Cerebrovascular accident [None]
  - Hypertensive crisis [None]
  - Headache [None]
  - Visual impairment [None]
  - Cerebral infarction [None]
